FAERS Safety Report 14530942 (Version 1)
Quarter: 2018Q1

REPORT INFORMATION
  Report Type: Spontaneous
  Country: US (occurrence: US)
  Receive Date: 20180213
  Receipt Date: 20180213
  Transmission Date: 20180509
  Serious: Yes (Hospitalization)
  Sender: FDA-Public Use
  Company Number: None

PATIENT
  Age: 55 Year
  Sex: Female
  Weight: 60.4 kg

DRUGS (1)
  1. KEYTRUDA [Suspect]
     Active Substance: PEMBROLIZUMAB
     Indication: LUNG SQUAMOUS CELL CARCINOMA STAGE III
     Dosage: ?          OTHER FREQUENCY:Q 3 WEEKS;?

REACTIONS (5)
  - Dyspnoea [None]
  - Hypoxia [None]
  - Pleural effusion [None]
  - Pneumonitis [None]
  - Pneumonia [None]

NARRATIVE: CASE EVENT DATE: 20171220
